FAERS Safety Report 5895073-3 (Version None)
Quarter: 2008Q3

REPORT INFORMATION
  Report Type: 
  Country: None (occurrence: None)
  Receive Date: 20080924
  Receipt Date: 20080916
  Transmission Date: 20090109
  Serious: Yes (Death, Life-Threatening)
  Sender: FDA-Public Use
  Company Number: JP-WYE-H06047108

PATIENT
  Sex: Female

DRUGS (7)
  1. ANCARON [Suspect]
     Indication: VENTRICULAR TACHYCARDIA
     Route: 042
     Dates: start: 20080105, end: 20080105
  2. MORPHINE HCL ELIXIR [Concomitant]
     Indication: ANALGESIA
     Dosage: DOSE UNKNOWN
     Route: 042
     Dates: start: 20080105, end: 20080105
  3. VASOLAN [Concomitant]
     Route: 042
     Dates: start: 20080105, end: 20080105
  4. LASIX [Concomitant]
     Route: 042
     Dates: start: 20080105, end: 20080105
  5. LIDOCAINE [Suspect]
     Route: 042
     Dates: start: 20080105, end: 20080105
  6. LIDOCAINE [Suspect]
     Route: 042
     Dates: start: 20080105, end: 20080105
  7. SHINBIT [Concomitant]
     Route: 042
     Dates: start: 20080105, end: 20080105

REACTIONS (2)
  - ARRHYTHMIA SUPRAVENTRICULAR [None]
  - DRUG INEFFECTIVE [None]
